FAERS Safety Report 24817586 (Version 2)
Quarter: 2025Q1

REPORT INFORMATION
  Report Type: Spontaneous
  Country: US (occurrence: US)
  Receive Date: 20250108
  Receipt Date: 20250109
  Transmission Date: 20250409
  Serious: No
  Sender: Haleon PLC
  Company Number: US-HALEON-2220912

PATIENT
  Age: 55 Year
  Sex: Female
  Weight: 74.843 kg

DRUGS (1)
  1. SENSODYNE EXTRA WHITENING [Suspect]
     Active Substance: POTASSIUM NITRATE\SODIUM FLUORIDE
     Indication: Aphthous ulcer
     Dosage: I USED IT JUST A FEW TIMES BEFORE
     Dates: end: 20250103

REACTIONS (2)
  - Eating disorder [Recovering/Resolving]
  - Aphthous ulcer [Recovering/Resolving]

NARRATIVE: CASE EVENT DATE: 20250101
